FAERS Safety Report 9353486 (Version 1)
Quarter: 2013Q2

REPORT INFORMATION
  Report Type: Spontaneous
  Country: US (occurrence: None)
  Receive Date: 20130617
  Receipt Date: 20130617
  Transmission Date: 20140414
  Serious: No
  Sender: FDA-Public Use
  Company Number: None

PATIENT
  Age: 57 Year
  Sex: Male

DRUGS (1)
  1. ENBREL SURECLICK [Suspect]
     Route: 058
     Dates: start: 20130507, end: 20130528

REACTIONS (4)
  - Pyrexia [None]
  - Muscular weakness [None]
  - Joint effusion [None]
  - Pain [None]
